FAERS Safety Report 8561054-4 (Version None)
Quarter: 2012Q3

REPORT INFORMATION
  Report Type: 
  Country: None (occurrence: None)
  Receive Date: 20120802
  Receipt Date: 20111130
  Transmission Date: 20120928
  Serious: Yes (Other)
  Sender: FDA-Public Use
  Company Number: US-BRISTOL-MYERS SQUIBB COMPANY-16262131

PATIENT
  Age: 30 Year
  Sex: Female
  Weight: 48 kg

DRUGS (2)
  1. TRUVADA [Suspect]
  2. REYATAZ [Suspect]

REACTIONS (3)
  - JAUNDICE [None]
  - RASH [None]
  - SKIN INDURATION [None]
